FAERS Safety Report 4644441-6 (Version None)
Quarter: 2005Q2

REPORT INFORMATION
  Report Type: 
  Country: None (occurrence: None)
  Receive Date: 20050331
  Receipt Date: 20041203
  Transmission Date: 20051028
  Serious: No
  Sender: FDA-Public Use
  Company Number: 04P-163-0282175-00

PATIENT
  Age: 60 Year
  Sex: Male

DRUGS (6)
  1. HUMIRA [Suspect]
     Indication: RHEUMATOID ARTHRITIS
     Dosage: 40 MG, 1 IN 1 D, SUBCUTANEOUS
     Route: 058
     Dates: start: 20041018
  2. LEFLUNOMIDE [Concomitant]
  3. PREDNISONE [Concomitant]
  4. ESOMEPRAZOLE [Concomitant]
  5. HYDROXYCHLOROQUINE SULFATE [Concomitant]
  6. BENACOR [Concomitant]

REACTIONS (3)
  - DRUG INEFFECTIVE [None]
  - INJECTION SITE RASH [None]
  - PRURITUS [None]
